FAERS Safety Report 24222968 (Version 1)
Quarter: 2024Q3

REPORT INFORMATION
  Report Type: Spontaneous
  Country: US (occurrence: None)
  Receive Date: 20240816
  Receipt Date: 20240816
  Transmission Date: 20241016
  Serious: No
  Sender: Public
  Company Number: None

PATIENT
  Age: 78 Year
  Sex: Male
  Weight: 84.6 kg

DRUGS (9)
  1. LASIX [Suspect]
     Active Substance: FUROSEMIDE
     Indication: Cardiac failure congestive
     Dosage: OTHER QUANTITY : 1 TABLET(S);?FREQUENCY : TWICE A DAY;?
     Route: 048
  2. haloperdol [Concomitant]
  3. DIGOXIN [Concomitant]
  4. ELIQUIS [Concomitant]
     Active Substance: APIXABAN
  5. NADOLOL [Concomitant]
     Active Substance: NADOLOL
  6. POTASSIUM CHLORIDE [Concomitant]
     Active Substance: POTASSIUM CHLORIDE
  7. TORSEMIDE [Concomitant]
     Active Substance: TORSEMIDE
  8. ASPIRIN [Concomitant]
     Active Substance: ASPIRIN
  9. multivitamin [Concomitant]

REACTIONS (3)
  - Product dosage form issue [None]
  - Ill-defined disorder [None]
  - Adverse event [None]

NARRATIVE: CASE EVENT DATE: 20240216
